FAERS Safety Report 6436773-6 (Version None)
Quarter: 2009Q4

REPORT INFORMATION
  Report Type: 
  Country: None (occurrence: None)
  Receive Date: 20091109
  Receipt Date: 20091026
  Transmission Date: 20100525
  Serious: No
  Sender: FDA-Public Use
  Company Number: CERZ-1001006

PATIENT
  Age: 55 Year
  Sex: Female

DRUGS (1)
  1. CEREZYME [Suspect]
     Indication: GAUCHER'S DISEASE

REACTIONS (5)
  - APHTHOUS STOMATITIS [None]
  - BLADDER DISORDER [None]
  - INFUSION SITE REACTION [None]
  - PAIN [None]
  - SPLENOMEGALY [None]
